FAERS Safety Report 7440156-X (Version None)
Quarter: 2011Q2

REPORT INFORMATION
  Report Type: 
  Country: None (occurrence: None)
  Receive Date: 20110427
  Receipt Date: 20110420
  Transmission Date: 20111010
  Serious: Yes (Death)
  Sender: FDA-Public Use
  Company Number: CA-ROCHE-772676

PATIENT
  Sex: Female

DRUGS (4)
  1. CAPECITABINE [Suspect]
     Indication: BREAST CANCER
     Dosage: THERAPY START DATE REPORTED AS 2011
     Route: 048
     Dates: end: 20110404
  2. DIGOXIN [Concomitant]
  3. ASPIRIN [Concomitant]
  4. CRESTOR [Concomitant]

REACTIONS (1)
  - DEATH [None]
